FAERS Safety Report 14259329 (Version 4)
Quarter: 2018Q2

REPORT INFORMATION
  Report Type: Spontaneous
  Country: ES (occurrence: ES)
  Receive Date: 20171207
  Receipt Date: 20180516
  Transmission Date: 20180711
  Serious: Yes (Death, Hospitalization, Other)
  Sender: FDA-Public Use
  Company Number: ES-GLAXOSMITHKLINE-ES2017183163

PATIENT
  Age: 57 Year
  Sex: Male
  Weight: 64 kg

DRUGS (14)
  1. DICLOFENAC [Suspect]
     Active Substance: DICLOFENAC
     Dosage: UNK
     Route: 065
  2. METAMIZOL [Concomitant]
     Active Substance: METAMIZOLE SODIUM
     Indication: ARTHRITIS
     Dosage: UNK
     Route: 065
  3. FUROSEMIDE. [Concomitant]
     Active Substance: FUROSEMIDE
     Indication: CARDIAC FAILURE
     Dosage: 40 MG, QD
     Route: 048
     Dates: start: 201312, end: 20171116
  4. PITAVASTATIN. [Concomitant]
     Active Substance: PITAVASTATIN CALCIUM
     Indication: DYSLIPIDAEMIA
     Dosage: 2 MG, QD
     Route: 048
     Dates: start: 2005, end: 20171116
  5. VALSARTAN. [Suspect]
     Active Substance: VALSARTAN
     Indication: CARDIAC FAILURE
     Dosage: UNK
     Route: 048
  6. BISOPROLOL [Concomitant]
     Active Substance: BISOPROLOL
     Indication: CARDIAC FAILURE
     Dosage: 2.5 MG, QD
     Route: 048
     Dates: start: 201312
  7. DICLOFENAC [Suspect]
     Active Substance: DICLOFENAC
     Indication: ARTHRITIS
     Dosage: UNK
     Route: 065
  8. DIOVAN [Suspect]
     Active Substance: VALSARTAN
     Indication: CARDIAC FAILURE
     Dosage: CODE NOT BROKEN
     Route: 048
  9. FENTANYL. [Concomitant]
     Active Substance: FENTANYL
     Indication: SPINAL COMPRESSION FRACTURE
     Dosage: 8.3 MG, QD
     Route: 062
     Dates: start: 2004, end: 20171116
  10. SACUBITRIL + VALSARTAN [Suspect]
     Active Substance: SACUBITRIL\VALSARTAN
     Indication: CARDIAC FAILURE
     Dosage: CODE NOT BROKEN
     Route: 048
  11. METAMIZOL [Concomitant]
     Active Substance: METAMIZOLE SODIUM
     Dosage: UNK
     Route: 065
  12. ACENOCUMAROL [Concomitant]
     Active Substance: ACENOCOUMAROL
     Indication: PROPHYLAXIS
     Dosage: ON DEMAND
     Route: 048
  13. ETORICOXIB [Concomitant]
     Active Substance: ETORICOXIB
     Indication: SPINAL COMPRESSION FRACTURE
     Dosage: 60 MG, QD
     Route: 048
     Dates: start: 2014, end: 20171116
  14. OMEPRAZOL [Concomitant]
     Active Substance: OMEPRAZOLE
     Indication: GASTRODUODENAL ULCER
     Dosage: 20 MG, QD
     Route: 048
     Dates: start: 20160912, end: 20171116

REACTIONS (4)
  - Upper gastrointestinal haemorrhage [Not Recovered/Not Resolved]
  - Osteomyelitis [Not Recovered/Not Resolved]
  - Cardiac arrest [Fatal]
  - Gouty arthritis [Not Recovered/Not Resolved]

NARRATIVE: CASE EVENT DATE: 20171117
